FAERS Safety Report 7281050-7 (Version None)
Quarter: 2011Q1

REPORT INFORMATION
  Report Type: 
  Country: None (occurrence: None)
  Receive Date: 20110208
  Receipt Date: 20110131
  Transmission Date: 20110831
  Serious: Yes (Death)
  Sender: FDA-Public Use
  Company Number: CHPA2011US01847

PATIENT
  Age: 44 Year
  Sex: Female

DRUGS (9)
  1. ETHANOL [Suspect]
     Dosage: UNK, UNK
     Route: 048
  2. LISINOPRIL AND HYDROCHLOROTHIAZIDE [Suspect]
     Dosage: UNK, UNK
     Route: 048
  3. DIPHENHYDRAMINE HCL [Suspect]
     Dosage: UNK, UNK
     Route: 048
  4. SALICYLATES [Suspect]
     Dosage: UNK, UNK
     Route: 048
  5. ATENOLOL [Suspect]
     Dosage: UNK, UNK
     Route: 048
  6. HYDROCHLOROTHIAZIDE [Suspect]
     Dosage: UNK, UNK
     Route: 048
  7. ACETAMINOPHEN (PARACETAMOL),DIPHENHYDRAMINE HYDROCHLORIDE [Suspect]
     Dosage: UNK, UNK
     Route: 048
  8. IBUPROFEN [Suspect]
     Dosage: UNK, UNK
     Route: 048
  9. METFORMIN HYDROCHLORIDE W/PIOGLITAZONE HYDROCHLORIDE [Suspect]
     Dosage: UNK, UNK
     Route: 048

REACTIONS (1)
  - COMPLETED SUICIDE [None]
